FAERS Safety Report 21290054 (Version 8)
Quarter: 2023Q1

REPORT INFORMATION
  Report Type: Report from Study
  Country: US (occurrence: US)
  Receive Date: 20220902
  Receipt Date: 20230128
  Transmission Date: 20230418
  Serious: Yes (Hospitalization)
  Sender: FDA-Public Use
  Company Number: NVSC2022US019485

PATIENT
  Sex: Male
  Weight: 16.51 kg

DRUGS (6)
  1. TREPROSTINIL [Suspect]
     Active Substance: TREPROSTINIL
     Indication: Pulmonary arterial hypertension
     Dosage: 56 NG/KG/MIN, CONT
     Route: 058
     Dates: start: 20210927
  2. TREPROSTINIL [Suspect]
     Active Substance: TREPROSTINIL
     Dosage: 56 NG/KG/MIN, CONT
     Route: 058
  3. TREPROSTINIL [Suspect]
     Active Substance: TREPROSTINIL
     Dosage: 46 NG/KG/MIN, CONT
     Route: 058
  4. TREPROSTINIL [Suspect]
     Active Substance: TREPROSTINIL
     Dosage: 46 NG/KG/MIN, CONT
     Route: 058
  5. AMBRISENTAN [Concomitant]
     Active Substance: AMBRISENTAN
     Indication: Product used for unknown indication
     Dosage: UNK
     Route: 065
  6. SILDENAFIL CITRATE [Concomitant]
     Active Substance: SILDENAFIL CITRATE
     Indication: Product used for unknown indication
     Dosage: UNK
     Route: 065

REACTIONS (4)
  - COVID-19 [Unknown]
  - Post procedural haemorrhage [Unknown]
  - Pneumonia [Unknown]
  - Oxygen saturation decreased [Unknown]
